FAERS Safety Report 9822524 (Version 1)
Quarter: 2014Q1

REPORT INFORMATION
  Report Type: Spontaneous
  Country: US (occurrence: US)
  Receive Date: 20140116
  Receipt Date: 20140116
  Transmission Date: 20141002
  Serious: No
  Sender: FDA-Public Use
  Company Number: US-ORAPHARMA-20111012832

PATIENT
  Sex: 0

DRUGS (1)
  1. ARESTIN [Suspect]
     Indication: GINGIVITIS
     Route: 004
     Dates: start: 20111011

REACTIONS (5)
  - Gingival discolouration [Recovered/Resolved]
  - Gingival pain [Recovered/Resolved]
  - Gingival swelling [Recovered/Resolved]
  - Gingival inflammation [Recovered/Resolved]
  - Product quality issue [Unknown]
